FAERS Safety Report 18342572 (Version 1)
Quarter: 2020Q4

REPORT INFORMATION
  Report Type: Spontaneous
  Country: US (occurrence: US)
  Receive Date: 20201005
  Receipt Date: 20201005
  Transmission Date: 20210113
  Serious: Yes (Other)
  Sender: FDA-Public Use
  Company Number: US-TEVA-2020-US-1834652

PATIENT
  Age: 58 Year
  Sex: Female

DRUGS (17)
  1. ONDANSETRON [Suspect]
     Active Substance: ONDANSETRON
     Indication: SYMPTOMATIC TREATMENT
     Dosage: CO-ADMINISTERED WITH DIPHENHYDRAMINE
     Route: 042
  2. FREMANEZUMAB 225MG [Suspect]
     Active Substance: FREMANEZUMAB
     Indication: MIGRAINE
     Route: 065
  3. HYDROXYCHLOROQUINE [Suspect]
     Active Substance: HYDROXYCHLOROQUINE
     Indication: COVID-19 PNEUMONIA
     Route: 065
  4. DIPHENHYDRAMINE. [Suspect]
     Active Substance: DIPHENHYDRAMINE
     Indication: SYMPTOMATIC TREATMENT
     Dosage: EVERY 8 HOURS
     Route: 042
  5. FINGOLIMOD. [Concomitant]
     Active Substance: FINGOLIMOD
     Indication: MULTIPLE SCLEROSIS
     Route: 065
  6. ONDANSETRON [Suspect]
     Active Substance: ONDANSETRON
     Indication: MENINGOENCEPHALITIS VIRAL
  7. LACOSAMIDE. [Suspect]
     Active Substance: LACOSAMIDE
     Indication: SYMPTOMATIC TREATMENT
     Dosage: 400 MILLIGRAM DAILY; 200MG
     Route: 042
  8. AZITHROMYCIN ANHYDROUS. [Suspect]
     Active Substance: AZITHROMYCIN ANHYDROUS
     Indication: COVID-19 PNEUMONIA
     Route: 065
  9. DIPHENHYDRAMINE. [Suspect]
     Active Substance: DIPHENHYDRAMINE
     Indication: MENINGOENCEPHALITIS VIRAL
  10. LACOSAMIDE. [Suspect]
     Active Substance: LACOSAMIDE
     Indication: MENINGOENCEPHALITIS VIRAL
  11. PROMETHAZINE [Suspect]
     Active Substance: PROMETHAZINE HYDROCHLORIDE
     Indication: SYMPTOMATIC TREATMENT
     Dosage: CO-ADMINISTERED WITH DIPHENHYDRAMINE
     Route: 042
  12. GABAPENTIN. [Concomitant]
     Active Substance: GABAPENTIN
     Dosage: 900 MILLIGRAM DAILY; 300MG IN THE MORNING AND 600MG AT NIGHT
     Route: 065
  13. FREMANEZUMAB 225MG [Suspect]
     Active Substance: FREMANEZUMAB
  14. ACETAMINOPHEN. [Suspect]
     Active Substance: ACETAMINOPHEN
     Indication: SYMPTOMATIC TREATMENT
     Dosage: 1G
     Route: 042
  15. ACETAMINOPHEN. [Suspect]
     Active Substance: ACETAMINOPHEN
     Indication: MENINGOENCEPHALITIS VIRAL
  16. PROMETHAZINE [Suspect]
     Active Substance: PROMETHAZINE HYDROCHLORIDE
     Indication: MENINGOENCEPHALITIS VIRAL
  17. PROCHLORPERAZINE. [Suspect]
     Active Substance: PROCHLORPERAZINE
     Indication: SYMPTOMATIC TREATMENT
     Dosage: CO-ADMINISTERED WITH DIPHENHYDRAMINE
     Route: 042

REACTIONS (4)
  - Drug ineffective [Unknown]
  - Therapeutic product effect variable [Unknown]
  - Inappropriate schedule of product administration [Unknown]
  - Off label use [Unknown]
